FAERS Safety Report 4399877-8 (Version None)
Quarter: 2004Q3

REPORT INFORMATION
  Report Type: 
  Country: None (occurrence: None)
  Receive Date: 20040714
  Receipt Date: 20040623
  Transmission Date: 20050211
  Serious: Yes (Hospitalization, Other)
  Sender: FDA-Public Use
  Company Number: FR_040403903

PATIENT
  Age: 70 Year
  Sex: Female

DRUGS (6)
  1. PROZAC [Suspect]
     Indication: DEPRESSION
     Dosage: 20 MG DAY
     Dates: start: 19890101
  2. ISOPTIN [Concomitant]
  3. CORVASAL (MOLSIDOMINE) [Concomitant]
  4. FENOFIBRATE [Concomitant]
  5. LEVOTHYROXINE SODIUM [Concomitant]
  6. LEXOMIL (BROMAZEPAM) [Concomitant]

REACTIONS (1)
  - INTERSTITIAL LUNG DISEASE [None]
